FAERS Safety Report 8503225-9 (Version None)
Quarter: 2012Q3

REPORT INFORMATION
  Report Type: 
  Country: None (occurrence: None)
  Receive Date: 20120711
  Receipt Date: 20120706
  Transmission Date: 20120928
  Serious: No
  Sender: FDA-Public Use
  Company Number: US-PFIZER INC-2012162473

PATIENT
  Age: 61 Year
  Sex: Male

DRUGS (2)
  1. LYRICA [Suspect]
     Indication: FIBROMYALGIA
     Dosage: 100 MG, 2X/DAY, 100MG IN AM AND 100MG IN PM
  2. LYRICA [Suspect]
     Indication: PAIN
     Dosage: 100 MG, 1X/DAY

REACTIONS (9)
  - AMNESIA [None]
  - OEDEMA [None]
  - FATIGUE [None]
  - ABDOMINAL DISTENSION [None]
  - ABDOMINAL PAIN [None]
  - DIZZINESS [None]
  - FEELING DRUNK [None]
  - INSOMNIA [None]
  - TREMOR [None]
